FAERS Safety Report 8872143 (Version 2)
Quarter: 2013Q1

REPORT INFORMATION
  Report Type: Spontaneous
  Country: US (occurrence: US)
  Receive Date: 20121026
  Receipt Date: 20130124
  Transmission Date: 20140127
  Serious: No
  Sender: FDA-Public Use
  Company Number: US-ASTRAZENECA-2012SE79191

PATIENT
  Age: 62 Year
  Sex: Male

DRUGS (4)
  1. SYMBICORT PMDI [Suspect]
     Indication: EMPHYSEMA
     Route: 055
  2. SYMBICORT PMDI [Suspect]
     Indication: EMPHYSEMA
     Dosage: TWO TIMES A DAY
     Route: 055
  3. ALBUTEROL [Concomitant]
  4. PREDNISONE [Concomitant]

REACTIONS (3)
  - Chronic obstructive pulmonary disease [Unknown]
  - Furuncle [Unknown]
  - Drug dose omission [Unknown]
